FAERS Safety Report 25484078 (Version 2)
Quarter: 2025Q3

REPORT INFORMATION
  Report Type: Spontaneous
  Country: EU (occurrence: EU)
  Receive Date: 20250626
  Receipt Date: 20250709
  Transmission Date: 20251020
  Serious: Yes (Hospitalization, Other)
  Sender: MYLAN
  Company Number: EU-ZENTIVA-2025-ZT-039320

PATIENT
  Age: 89 Year
  Sex: Female

DRUGS (8)
  1. SERTRALINE [Suspect]
     Active Substance: SERTRALINE HYDROCHLORIDE
     Indication: Product used for unknown indication
  2. SERTRALINE [Suspect]
     Active Substance: SERTRALINE HYDROCHLORIDE
     Route: 065
  3. SERTRALINE [Suspect]
     Active Substance: SERTRALINE HYDROCHLORIDE
     Route: 065
  4. SERTRALINE [Suspect]
     Active Substance: SERTRALINE HYDROCHLORIDE
  5. QUETIAPINE [Suspect]
     Active Substance: QUETIAPINE
     Indication: Product used for unknown indication
  6. QUETIAPINE [Suspect]
     Active Substance: QUETIAPINE
     Route: 065
  7. QUETIAPINE [Suspect]
     Active Substance: QUETIAPINE
     Route: 065
  8. QUETIAPINE [Suspect]
     Active Substance: QUETIAPINE

REACTIONS (8)
  - Food refusal [Unknown]
  - Fatigue [Unknown]
  - Inappropriate antidiuretic hormone secretion [Unknown]
  - Rales [Unknown]
  - Atrial natriuretic peptide increased [Unknown]
  - Urine osmolarity increased [Unknown]
  - Cortisol increased [Unknown]
  - Hyponatraemia [Unknown]
